FAERS Safety Report 12312058 (Version 1)
Quarter: 2016Q2

REPORT INFORMATION
  Report Type: Spontaneous
  Country: US (occurrence: US)
  Receive Date: 20160427
  Receipt Date: 20160427
  Transmission Date: 20160815
  Serious: Yes (Death, Life-Threatening, Hospitalization, Other)
  Sender: FDA-Public Use
  Company Number: US-ROXANE LABORATORIES, INC.-2016-RO-00760RO

PATIENT
  Sex: Male

DRUGS (4)
  1. NYSTATIN. [Concomitant]
     Active Substance: NYSTATIN
     Indication: ANTIFUNGAL PROPHYLAXIS
     Route: 065
  2. METHOTREXATE [Suspect]
     Active Substance: METHOTREXATE
     Indication: ACUTE LYMPHOCYTIC LEUKAEMIA
     Route: 048
  3. DEXAMETHASONE TABLETS USP, 1.5 MG [Suspect]
     Active Substance: DEXAMETHASONE
     Indication: ACUTE LYMPHOCYTIC LEUKAEMIA
     Route: 048
  4. MERCAPTOPURINE. [Suspect]
     Active Substance: MERCAPTOPURINE
     Indication: ACUTE LYMPHOCYTIC LEUKAEMIA
     Route: 048

REACTIONS (10)
  - Disseminated cryptococcosis [Fatal]
  - Cardio-respiratory arrest [Fatal]
  - Dermatitis [Unknown]
  - Pseudomonas infection [Unknown]
  - Transaminases increased [Unknown]
  - Cardiac arrest [Recovered/Resolved]
  - Upper respiratory tract infection [Unknown]
  - Enterococcal infection [Unknown]
  - Klebsiella infection [Unknown]
  - Neutropenia [Unknown]
